FAERS Safety Report 15117619 (Version 5)
Quarter: 2019Q2

REPORT INFORMATION
  Report Type: Report from Study
  Country: US (occurrence: US)
  Receive Date: 20180706
  Receipt Date: 20190515
  Transmission Date: 20190711
  Serious: Yes (Hospitalization)
  Sender: FDA-Public Use
  Company Number: US-ACTELION-A-NJ2017-163012

PATIENT
  Age: 55 Year
  Sex: Female
  Weight: 57.6 kg

DRUGS (13)
  1. POTASSIUM CHLORIDE. [Concomitant]
     Active Substance: POTASSIUM CHLORIDE
     Dosage: 20 MEQ, UNK
     Dates: start: 20180207
  2. SPIRIVA [Concomitant]
     Active Substance: TIOTROPIUM BROMIDE MONOHYDRATE
     Dosage: UNK
     Dates: start: 20180927
  3. DIGOX [Concomitant]
     Active Substance: DIGOXIN
     Dosage: 0.125 UNK, UNK
     Dates: start: 20180820
  4. FUROSEMIDE. [Concomitant]
     Active Substance: FUROSEMIDE
     Dosage: 40 MG, UNK
     Dates: start: 20180914
  5. AMOXICILLIN. [Concomitant]
     Active Substance: AMOXICILLIN
  6. OPSUMIT [Suspect]
     Active Substance: MACITENTAN
     Indication: PULMONARY ARTERIAL HYPERTENSION
     Dosage: 10 MG, QD
     Route: 048
     Dates: start: 20180223
  7. SILDENAFIL CITRATE. [Concomitant]
     Active Substance: SILDENAFIL CITRATE
  8. FAMOTIDINE. [Concomitant]
     Active Substance: FAMOTIDINE
     Dosage: 20 MG, UNK
     Dates: start: 20180113
  9. TORSEMIDE. [Concomitant]
     Active Substance: TORSEMIDE
     Dosage: 20 MG, UNK
  10. SPIRONOLACTONE. [Concomitant]
     Active Substance: SPIRONOLACTONE
  11. ADEMPAS [Concomitant]
     Active Substance: RIOCIGUAT
  12. ONDANSETRON [Concomitant]
     Active Substance: ONDANSETRON
     Dosage: 40 MG, UNK
     Dates: start: 20181012
  13. AZITHROMYCIN ANHYDROUS. [Concomitant]
     Active Substance: AZITHROMYCIN ANHYDROUS

REACTIONS (15)
  - Abdominal distension [Recovered/Resolved]
  - Nausea [Not Recovered/Not Resolved]
  - Headache [Not Recovered/Not Resolved]
  - Pulmonary oedema [Unknown]
  - Dyspnoea [Unknown]
  - Decreased appetite [Unknown]
  - Memory impairment [Unknown]
  - Chest pain [Not Recovered/Not Resolved]
  - Cough [Not Recovered/Not Resolved]
  - Abdominal pain upper [Unknown]
  - Cardiac flutter [Unknown]
  - Peripheral swelling [Unknown]
  - Pleural effusion [Recovered/Resolved]
  - Product dose omission [Unknown]
  - Influenza [Not Recovered/Not Resolved]

NARRATIVE: CASE EVENT DATE: 20180602
